FAERS Safety Report 8352267-5 (Version None)
Quarter: 2012Q2

REPORT INFORMATION
  Report Type: 
  Country: None (occurrence: None)
  Receive Date: 20120511
  Receipt Date: 20120504
  Transmission Date: 20120825
  Serious: Yes (Hospitalization)
  Sender: FDA-Public Use
  Company Number: US-BAYER-2012-044448

PATIENT
  Age: 31 Year
  Sex: Female

DRUGS (10)
  1. ALLEGRA-D 12 HOUR [Concomitant]
     Dosage: 120 MG, UNK
     Route: 048
  2. PROAIR HFA [Concomitant]
     Dosage: 90 MCG, UNK
  3. FLOVENT HFA [Concomitant]
     Dosage: 220 MCG, UNK
  4. FLONASE [Concomitant]
     Dosage: 0.05 MG, UNK
  5. ALLEGRA-D 12 HOUR [Concomitant]
     Dosage: 60 MG, UNK
     Route: 048
  6. NEXIUM [Concomitant]
     Dosage: 40 MG, DAILY
     Route: 048
  7. SINGULAIR [Concomitant]
     Dosage: 10 MG, DAILY
     Route: 048
  8. YASMIN [Suspect]
  9. LEXAPRO [Concomitant]
     Indication: DEPRESSION
     Dosage: 10 MG/24HR, UNK
     Route: 048
  10. YAZ [Suspect]

REACTIONS (1)
  - PULMONARY EMBOLISM [None]
